FAERS Safety Report 18601742 (Version 1)
Quarter: 2020Q4

REPORT INFORMATION
  Report Type: Spontaneous
  Country: US (occurrence: US)
  Receive Date: 20201210
  Receipt Date: 20201210
  Transmission Date: 20210114
  Serious: No
  Sender: FDA-Public Use
  Company Number: US-ASTRAZENECA-2020SF57242

PATIENT
  Age: 646 Month
  Sex: Male
  Weight: 122.5 kg

DRUGS (3)
  1. METFORMIN [Concomitant]
     Active Substance: METFORMIN HYDROCHLORIDE
     Indication: DIABETES MELLITUS
     Route: 048
  2. LISINOPRIL. [Concomitant]
     Active Substance: LISINOPRIL
     Indication: BLOOD PRESSURE ABNORMAL
     Route: 048
  3. BYDUREON [Suspect]
     Active Substance: EXENATIDE
     Route: 058
     Dates: start: 20201103

REACTIONS (5)
  - Drug dose omission by device [Unknown]
  - Diabetes mellitus inadequate control [Unknown]
  - Wrong technique in device usage process [Unknown]
  - Device malfunction [Unknown]
  - Dizziness [Unknown]

NARRATIVE: CASE EVENT DATE: 202011
